FAERS Safety Report 7295924-4 (Version None)
Quarter: 2011Q1

REPORT INFORMATION
  Report Type: 
  Country: None (occurrence: None)
  Receive Date: 20110216
  Receipt Date: 20110211
  Transmission Date: 20110831
  Serious: Yes (Other)
  Sender: FDA-Public Use
  Company Number: US-AMGEN-QUU435735

PATIENT
  Age: 69 Year
  Sex: Male

DRUGS (1)
  1. NPLATE [Suspect]
     Indication: IDIOPATHIC THROMBOCYTOPENIC PURPURA
     Dosage: UNK UNK, UNK
     Dates: start: 20080626

REACTIONS (6)
  - ANAEMIA MACROCYTIC [None]
  - RED BLOOD CELL MORPHOLOGY ABNORMAL [None]
  - THROMBOCYTOPENIA [None]
  - BONE MARROW RETICULIN FIBROSIS [None]
  - NEUTROPHILIA [None]
  - THERAPEUTIC RESPONSE DECREASED [None]
